FAERS Safety Report 4993642-6 (Version None)
Quarter: 2006Q2

REPORT INFORMATION
  Report Type: 
  Country: None (occurrence: None)
  Receive Date: 20060505
  Receipt Date: 20060428
  Transmission Date: 20061013
  Serious: Yes (Hospitalization)
  Sender: FDA-Public Use
  Company Number: FR-MERCK-0604FRA00073

PATIENT
  Age: 61 Year
  Sex: Male

DRUGS (12)
  1. ZETIA [Suspect]
     Indication: HYPERCHOLESTEROLAEMIA
     Route: 048
     Dates: start: 20060415, end: 20060423
  2. FLUINDIONE [Suspect]
     Indication: THROMBOSIS PROPHYLAXIS
     Route: 048
     Dates: start: 20040101, end: 20060423
  3. FLUINDIONE [Suspect]
     Route: 048
     Dates: start: 20060425
  4. HYDROCHLOROTHIAZIDE AND IRBESARTAN [Concomitant]
     Indication: HYPERTENSION
     Route: 048
  5. NIFEDIPINE [Concomitant]
     Indication: HYPERTENSION
     Route: 048
  6. CIFENLINE SUCCINATE [Concomitant]
     Indication: PROPHYLAXIS
     Route: 048
  7. SINGULAIR [Concomitant]
     Indication: ASTHMA
     Route: 048
  8. FLUTICASONE PROPIONATE [Concomitant]
     Indication: ASTHMA
     Route: 055
  9. ALBUTEROL SULFATE [Concomitant]
     Indication: ASTHMA
     Route: 055
  10. DESLORATADINE [Concomitant]
     Indication: ASTHMA
     Route: 048
  11. MOMETASONE FUROATE [Concomitant]
     Indication: RHINITIS ALLERGIC
     Route: 055
  12. ACETAMINOPHEN [Concomitant]
     Indication: OSTEOARTHRITIS
     Route: 048

REACTIONS (3)
  - DRUG INTERACTION [None]
  - HAEMOPTYSIS [None]
  - INTERNATIONAL NORMALISED RATIO INCREASED [None]
